FAERS Safety Report 6619000-6 (Version None)
Quarter: 2010Q1

REPORT INFORMATION
  Report Type: 
  Country: None (occurrence: None)
  Receive Date: 20100308
  Receipt Date: 20100302
  Transmission Date: 20100710
  Serious: Yes (Life-Threatening, Hospitalization)
  Sender: FDA-Public Use
  Company Number: PHEH2010US02872

PATIENT
  Age: 79 Year
  Sex: Female
  Weight: 71.202 kg

DRUGS (5)
  1. RECLAST [Suspect]
     Indication: OSTEOPOROSIS
     Dosage: 5 MG ONCE YEARLY
     Dates: start: 20100201
  2. ASPIRIN [Concomitant]
     Dosage: 81 MG, QD
  3. BENICAR [Concomitant]
     Dosage: 20 MG, QD
  4. CALCIUM [Concomitant]
  5. VITAMIN D [Concomitant]

REACTIONS (6)
  - DIALYSIS [None]
  - DIARRHOEA [None]
  - HYPOTENSION [None]
  - METABOLIC ACIDOSIS [None]
  - RENAL FAILURE ACUTE [None]
  - URINARY TRACT INFECTION [None]
